FAERS Safety Report 10072431 (Version 2)
Quarter: 2014Q2

REPORT INFORMATION
  Report Type: Spontaneous
  Country: US (occurrence: US)
  Receive Date: 20140411
  Receipt Date: 20140604
  Transmission Date: 20141212
  Serious: Yes (Death, Hospitalization)
  Sender: FDA-Public Use
  Company Number: US-NOVOPROD-405821

PATIENT
  Age: 61 Year
  Sex: Male
  Weight: 106.58 kg

DRUGS (2)
  1. VICTOZA [Suspect]
     Indication: TYPE 2 DIABETES MELLITUS
     Dosage: 18 MG, QD
     Route: 058
     Dates: start: 20100904, end: 20130218
  2. BYETTA [Suspect]
     Indication: TYPE 2 DIABETES MELLITUS
     Dosage: 10 ?G, BID
     Route: 058
     Dates: start: 20080118, end: 20100411

REACTIONS (1)
  - Pancreatic carcinoma [Fatal]
